FAERS Safety Report 8472224-8 (Version None)
Quarter: 2012Q2

REPORT INFORMATION
  Report Type: 
  Country: None (occurrence: None)
  Receive Date: 20120627
  Receipt Date: 20120615
  Transmission Date: 20120825
  Serious: Yes (Hospitalization, Disabling, Other)
  Sender: FDA-Public Use
  Company Number: US-ELI_LILLY_AND_COMPANY-US201108003939

PATIENT
  Sex: Female

DRUGS (14)
  1. FERROUS SULFATE TAB [Concomitant]
  2. CALCIUM [Concomitant]
  3. FORTEO [Suspect]
     Indication: OSTEOPOROSIS
     Dosage: 20 UG, QD
     Route: 065
  4. AMIODARONE HYDROCHLORIDE [Concomitant]
     Dosage: 200 MG, QD
  5. ALBUTEROL [Concomitant]
  6. METOPROLOL TARTRATE [Concomitant]
     Dosage: 100 MG, BID
  7. LUTEIN [Concomitant]
  8. LASIX [Concomitant]
     Dosage: UNK
  9. NAMENDA [Concomitant]
     Dosage: 10 MG, BID
  10. SODIUM CHLORIDE [Concomitant]
  11. VITAMIN TAB [Concomitant]
  12. FISH OIL [Concomitant]
  13. CYMBALTA [Concomitant]
     Indication: DEPRESSION
     Dosage: 30 MG, BID
  14. ARICEPT [Concomitant]
     Dosage: 10 MG, UNK

REACTIONS (14)
  - CONTUSION [None]
  - LUNG INFECTION [None]
  - GAIT DISTURBANCE [None]
  - FEELING ABNORMAL [None]
  - AGEUSIA [None]
  - INCONTINENCE [None]
  - PULMONARY OEDEMA [None]
  - PNEUMONIA [None]
  - CARDIAC DISORDER [None]
  - CARDIAC FAILURE CONGESTIVE [None]
  - FALL [None]
  - ASTHENIA [None]
  - FACE INJURY [None]
  - DEMENTIA ALZHEIMER'S TYPE [None]
